FAERS Safety Report 11994860 (Version 1)
Quarter: 2016Q1

REPORT INFORMATION
  Report Type: Report from Study
  Country: US (occurrence: US)
  Receive Date: 20160203
  Receipt Date: 20160203
  Transmission Date: 20160526
  Serious: Yes (Hospitalization)
  Sender: FDA-Public Use
  Company Number: US-TEVA-630289USA

PATIENT
  Age: 36 Year
  Sex: Female

DRUGS (20)
  1. TUMS [Concomitant]
     Active Substance: CALCIUM CARBONATE
     Indication: DYSPEPSIA
     Dosage: 2 TABLETS, AS REQUIRED
     Route: 048
     Dates: start: 20150629
  2. EMEND [Concomitant]
     Active Substance: APREPITANT
     Indication: PROPHYLAXIS OF NAUSEA AND VOMITING
     Route: 042
     Dates: start: 20150908
  3. ZOFRAN [Concomitant]
     Active Substance: ONDANSETRON HYDROCHLORIDE
     Indication: PROPHYLAXIS OF NAUSEA AND VOMITING
     Dosage: PRIOR TO CHEMOTHERAPY
     Route: 058
     Dates: start: 20151013
  4. ABT-888 (VELIPARIB) (BLINDED) [Suspect]
     Active Substance: VELIPARIB
     Indication: TRIPLE NEGATIVE BREAST CANCER
     Dosage: DAILY DURING EACH 21-DAY CYCLE DURING CHEMOTHERAPY IN SEGMENT 1
     Route: 048
     Dates: start: 20150623
  5. RANITIDINE HYDROCHLORIDE. [Concomitant]
     Active Substance: RANITIDINE HYDROCHLORIDE
     Dosage: PRIOR TO CHEMOTHERAPY
     Route: 042
     Dates: start: 20150813, end: 20150915
  6. PROCHLORPERAZINE MALEATE. [Concomitant]
     Active Substance: PROCHLORPERAZINE MALEATE
     Indication: NAUSEA
     Route: 048
     Dates: start: 20150625
  7. NEULASTA [Concomitant]
     Active Substance: PEGFILGRASTIM
     Indication: PROPHYLAXIS
     Dosage: DAY AFTER CHEMOTHERAPY
     Route: 058
     Dates: start: 20151013
  8. ONDANSETRON HYDROCHLORIDE. [Concomitant]
     Active Substance: ONDANSETRON HYDROCHLORIDE
     Indication: PROPHYLAXIS OF NAUSEA AND VOMITING
     Dosage: PRIOR TO CHEMOTHERAPY
     Route: 042
     Dates: start: 20150623, end: 20150707
  9. DIPHENHYDRAMINE HYDROCHLORIDE. [Concomitant]
     Active Substance: DIPHENHYDRAMINE HYDROCHLORIDE
     Indication: PROPHYLAXIS
     Dosage: PRIOR TO CHEMOTHERAPY
     Route: 042
     Dates: start: 20150623, end: 20150908
  10. DECADRON [Concomitant]
     Active Substance: DEXAMETHASONE
     Indication: INFUSION RELATED REACTION
     Dosage: 10 MILLIGRAM DAILY;
     Route: 042
     Dates: start: 20150908, end: 20150908
  11. DOXORUBICIN [Suspect]
     Active Substance: DOXORUBICIN
     Indication: TRIPLE NEGATIVE BREAST CANCER
     Dosage: DAY 1 OF 14-DAY CYCLE DURING CHEMOTHERAPY IN SEGMENT 2
     Route: 042
     Dates: start: 20151013, end: 20151208
  12. CARBOPLATIN. [Suspect]
     Active Substance: CARBOPLATIN
     Indication: TRIPLE NEGATIVE BREAST CANCER
     Dosage: 6 AUC: DAY 1 OF EACH 21-DAY CYCLE DURING CHEMOTHERAPY SEGMENT 1
     Route: 042
     Dates: start: 20150623
  13. PACLITAXEL. [Suspect]
     Active Substance: PACLITAXEL
     Indication: TRIPLE NEGATIVE BREAST CANCER
     Dosage: DAY 1 OF 12 WEEKLY CYCLES DURING CHEMOTHERAPY IN SEGMENT 1
     Route: 042
     Dates: start: 20150623
  14. DIPHENHYDRAMINE HYDROCHLORIDE. [Concomitant]
     Active Substance: DIPHENHYDRAMINE HYDROCHLORIDE
     Indication: INFUSION RELATED REACTION
     Dosage: 25 MILLIGRAM DAILY;
     Route: 042
     Dates: start: 20150908, end: 20150908
  15. DECADRON [Concomitant]
     Active Substance: DEXAMETHASONE
     Indication: PROPHYLAXIS OF NAUSEA AND VOMITING
     Dosage: PRIOR TO CHEMOTHERAPY
     Route: 042
     Dates: start: 20151013
  16. DIPHENHYDRAMINE HYDROCHLORIDE. [Concomitant]
     Active Substance: DIPHENHYDRAMINE HYDROCHLORIDE
     Dosage: 50 MILLIGRAM DAILY; PRIOR TO CHEMOTHERAPY
     Route: 042
     Dates: start: 20150915, end: 20150915
  17. DEXAMETHASONE. [Concomitant]
     Active Substance: DEXAMETHASONE
     Indication: PROPHYLAXIS
     Route: 042
     Dates: start: 20150915, end: 20150915
  18. DEXAMETHASONE SODIUM PHOSPHATE. [Concomitant]
     Active Substance: DEXAMETHASONE SODIUM PHOSPHATE
     Indication: PROPHYLAXIS OF NAUSEA AND VOMITING
     Dosage: PRIOR TO CHEMOTHERAPY
     Route: 042
     Dates: start: 20150623, end: 20150908
  19. RANITIDINE HYDROCHLORIDE. [Concomitant]
     Active Substance: RANITIDINE HYDROCHLORIDE
     Indication: GASTROOESOPHAGEAL REFLUX PROPHYLAXIS
     Dosage: PRIOR TO CHEMOTHERAPY
     Route: 042
     Dates: start: 20150623, end: 20150714
  20. ALOXI [Concomitant]
     Active Substance: PALONOSETRON HYDROCHLORIDE
     Indication: PROPHYLAXIS OF NAUSEA AND VOMITING
     Dosage: PRIOR TO CHEMOTHERAPY
     Route: 042
     Dates: start: 20150714

REACTIONS (1)
  - Febrile neutropenia [Recovered/Resolved]

NARRATIVE: CASE EVENT DATE: 20151215
